FAERS Safety Report 25352814 (Version 1)
Quarter: 2025Q2

REPORT INFORMATION
  Report Type: Spontaneous
  Country: FR (occurrence: FR)
  Receive Date: 20250523
  Receipt Date: 20250523
  Transmission Date: 20250717
  Serious: Yes (Other)
  Sender: RECKITT BENCKISER
  Company Number: None

PATIENT

DRUGS (4)
  1. BUPRENORPHINE [Suspect]
     Active Substance: BUPRENORPHINE
     Indication: Product used for unknown indication
     Route: 042
     Dates: start: 202408
  2. BUPRENORPHINE [Suspect]
     Active Substance: BUPRENORPHINE
     Route: 060
     Dates: start: 202408
  3. DIAZEPAM [Suspect]
     Active Substance: DIAZEPAM
     Indication: Product used for unknown indication
     Dosage: 10 MILLIGRAMS, QD
     Route: 048
     Dates: start: 2015
  4. ZOPICLONE [Suspect]
     Active Substance: ZOPICLONE
     Indication: Product used for unknown indication
     Route: 048
     Dates: start: 2015

REACTIONS (2)
  - Product use issue [Not Recovered/Not Resolved]
  - Drug use disorder [Not Recovered/Not Resolved]
